FAERS Safety Report 24133935 (Version 2)
Quarter: 2024Q3

REPORT INFORMATION
  Report Type: Spontaneous
  Country: FR (occurrence: FR)
  Receive Date: 20240724
  Receipt Date: 20240918
  Transmission Date: 20241017
  Serious: Yes (Other)
  Sender: INCYTE
  Company Number: FR-INCYTE CORPORATION-2024IN007709

PATIENT

DRUGS (1)
  1. PEMAZYRE [Suspect]
     Active Substance: PEMIGATINIB
     Indication: Cholangiocarcinoma
     Dosage: 9 MILLIGRAM
     Route: 065

REACTIONS (5)
  - Retinal neovascularisation [Unknown]
  - Subretinal fluid [Unknown]
  - Serous retinal detachment [Unknown]
  - Blood phosphorus increased [Unknown]
  - Fatigue [Unknown]
